FAERS Safety Report 21018737 (Version 1)
Quarter: 2022Q2

REPORT INFORMATION
  Report Type: Other
  Country: CA (occurrence: CA)
  Receive Date: 20220628
  Receipt Date: 20220628
  Transmission Date: 20220721
  Serious: Yes (Other)
  Sender: FDA-Public Use
  Company Number: CA-PFIZER INC-202200902030

PATIENT
  Age: 58 Year
  Sex: Male

DRUGS (5)
  1. CYTARABINE [Suspect]
     Active Substance: CYTARABINE
     Indication: Chemotherapy
     Dosage: UNK
     Route: 065
  2. FLUCONAZOLE [Suspect]
     Active Substance: FLUCONAZOLE
     Indication: Prophylaxis
     Dosage: 400 MG, 1X/DAY
     Route: 048
  3. AMOXICILLIN [Suspect]
     Active Substance: AMOXICILLIN
     Indication: Prophylaxis
     Dosage: 500 MG, 1 EVERY 8 HOURS
     Route: 048
  4. CIPROFLOXACIN [Suspect]
     Active Substance: CIPROFLOXACIN
     Indication: Prophylaxis
     Dosage: 500 MG, 2X/DAY
     Route: 048
  5. DAUNORUBICIN [Suspect]
     Active Substance: DAUNORUBICIN
     Indication: Chemotherapy
     Dosage: UNK
     Route: 065

REACTIONS (2)
  - Febrile neutropenia [Recovered/Resolved]
  - Gastrointestinal mucormycosis [Recovered/Resolved]
